FAERS Safety Report 9799677 (Version 2)
Quarter: 2014Q1

REPORT INFORMATION
  Report Type: Spontaneous
  Country: US (occurrence: US)
  Receive Date: 20140106
  Receipt Date: 20140106
  Transmission Date: 20141002
  Serious: No
  Sender: FDA-Public Use
  Company Number: US-GILEAD-2010-0032023

PATIENT
  Age: 56 Year
  Sex: Female

DRUGS (11)
  1. LETAIRIS [Suspect]
     Indication: PULMONARY ARTERIAL HYPERTENSION
     Route: 048
     Dates: start: 20100908, end: 20100920
  2. DILTIAZEM [Concomitant]
  3. TRILIPIX [Concomitant]
  4. OMEPRAZOLE [Concomitant]
  5. TYLENOL #3 [Concomitant]
  6. TRAMADOL [Concomitant]
  7. AZATHIOPRINE [Concomitant]
  8. CILOSTAZOL [Concomitant]
  9. LEXAPRO [Concomitant]
  10. PREDNISONE [Concomitant]
  11. LEVOTHYROXINE [Concomitant]

REACTIONS (1)
  - Oedema [Not Recovered/Not Resolved]
